FAERS Safety Report 5155002-7 (Version None)
Quarter: 2006Q4

REPORT INFORMATION
  Report Type: 
  Country: None (occurrence: None)
  Receive Date: 20061121
  Receipt Date: 20061010
  Transmission Date: 20070319
  Serious: Yes (Hospitalization)
  Sender: FDA-Public Use
  Company Number: DE-ROCHE-466833

PATIENT
  Age: 66 Year
  Sex: Female
  Weight: 74 kg

DRUGS (3)
  1. CAPECITABINE [Suspect]
     Route: 048
     Dates: start: 20060922, end: 20061004
  2. BELOC-ZOK [Concomitant]
     Indication: HYPERTENSION
  3. CORINFAR [Concomitant]

REACTIONS (5)
  - ANAEMIA [None]
  - COLITIS [None]
  - DIARRHOEA HAEMORRHAGIC [None]
  - STOMATITIS [None]
  - ULCER [None]
